FAERS Safety Report 5657918-1 (Version None)
Quarter: 2008Q1

REPORT INFORMATION
  Report Type: 
  Country: None (occurrence: None)
  Receive Date: 20080310
  Receipt Date: 20080307
  Transmission Date: 20080703
  Serious: Yes (Hospitalization)
  Sender: FDA-Public Use
  Company Number: US-BAXTER-2008BH002047

PATIENT
  Age: 84 Year
  Sex: Male
  Weight: 95 kg

DRUGS (9)
  1. HEPARIN SODIUM [Suspect]
     Indication: DRUG USE FOR UNKNOWN INDICATION
     Dosage: DOSE UNIT:UNKNOWN
     Route: 065
  2. ASPIRIN [Concomitant]
     Indication: CARDIAC DISORDER
     Route: 048
     Dates: start: 19980101
  3. AVODART [Concomitant]
     Indication: URINARY TRACT DISORDER
     Route: 048
     Dates: start: 20020101
  4. LISINOPRIL [Concomitant]
     Indication: HYPERTENSION
     Route: 048
     Dates: start: 20040101
  5. LIPITOR [Concomitant]
     Indication: HYPERCHOLESTEROLAEMIA
     Route: 048
     Dates: start: 20020101
  6. PLAVIX [Concomitant]
     Indication: ANTIPLATELET THERAPY
     Route: 048
     Dates: start: 20080101
  7. TERAZOSIN [Concomitant]
     Indication: URINARY TRACT DISORDER
     Route: 048
     Dates: start: 20040101
  8. METOPROLOL TARTRATE [Concomitant]
     Indication: CARDIAC DISORDER
     Route: 048
     Dates: start: 20020101
  9. FUROSEMIDE [Concomitant]
     Indication: HYPERTENSION
     Route: 048
     Dates: start: 20020101

REACTIONS (11)
  - ANOREXIA [None]
  - ASTHENIA [None]
  - BLOOD TEST ABNORMAL [None]
  - CONTUSION [None]
  - DIARRHOEA [None]
  - DYSPNOEA [None]
  - FALL [None]
  - GASTROINTESTINAL DISORDER [None]
  - HAEMORRHAGE [None]
  - HYPOTENSION [None]
  - LIMB INJURY [None]
